FAERS Safety Report 12841756 (Version 1)
Quarter: 2016Q4

REPORT INFORMATION
  Report Type: Spontaneous
  Country: US (occurrence: US)
  Receive Date: 20161012
  Receipt Date: 20161012
  Transmission Date: 20170207
  Serious: No
  Sender: FDA-Public Use
  Company Number: US-SEATTLE GENETICS-2016SGN00027

PATIENT
  Sex: Male

DRUGS (1)
  1. ADCETRIS [Suspect]
     Active Substance: BRENTUXIMAB VEDOTIN
     Indication: PERIPHERAL T-CELL LYMPHOMA UNSPECIFIED
     Route: 065

REACTIONS (6)
  - Neuropathy peripheral [Unknown]
  - Alopecia [Unknown]
  - Sleep disorder [Unknown]
  - Mass [Not Recovered/Not Resolved]
  - Myalgia [Unknown]
  - Fatigue [Unknown]
